FAERS Safety Report 5626838-0 (Version None)
Quarter: 2008Q1

REPORT INFORMATION
  Report Type: 
  Country: None (occurrence: None)
  Receive Date: 20080212
  Receipt Date: 20080205
  Transmission Date: 20080703
  Serious: Yes (Hospitalization)
  Sender: FDA-Public Use
  Company Number: 02100-JPN-07-0725

PATIENT
  Age: 63 Year
  Sex: Male

DRUGS (12)
  1. PLETAL [Suspect]
     Indication: CEREBRAL INFARCTION
     Dosage: 100 MG, BID, ORAL; 50
     Route: 048
     Dates: start: 20050121, end: 20071025
  2. PLETAL [Suspect]
     Indication: CEREBRAL INFARCTION
     Dosage: 100 MG, BID, ORAL; 50
     Route: 048
     Dates: start: 20071121, end: 20071217
  3. PLETAL [Suspect]
     Indication: CEREBRAL INFARCTION
     Dosage: 81 MG, QD, ORAL
     Route: 048
     Dates: start: 20050121, end: 20071025
  4. METHYCOBAL (MECOBALAMIN) TABLET [Concomitant]
  5. SELBEX (TEPRENONE) CAPSULE [Concomitant]
  6. AMOBAN (ZOPICLONE) TABLET [Concomitant]
  7. MEVALOTIN (PRAVASTATIN SODIUM) TABLET [Concomitant]
  8. CEPHADOL (DIFENIDOL HYDROCHLORIDE) TABLET [Concomitant]
  9. GASTER D (FAMOTIDINE) TABLET F [Concomitant]
  10. FLIVAS (NAFTOPIDIL) TABLET [Concomitant]
  11. UBRETID (DISTIGMINE BROMIDE) TABLET [Concomitant]
  12. LOSARTAN POTASSIUM [Concomitant]

REACTIONS (1)
  - OESOPHAGEAL CARCINOMA [None]
